FAERS Safety Report 21371162 (Version 1)
Quarter: 2022Q3

REPORT INFORMATION
  Report Type: Spontaneous
  Country: US (occurrence: US)
  Receive Date: 20220923
  Receipt Date: 20220923
  Transmission Date: 20221027
  Serious: Yes (Hospitalization, Other)
  Sender: FDA-Public Use
  Company Number: US-PPDUS-2022ST000182

PATIENT
  Age: 12 Year
  Sex: Male

DRUGS (1)
  1. ELZONRIS [Suspect]
     Active Substance: TAGRAXOFUSP-ERZS
     Indication: Blastic plasmacytoid dendritic cell neoplasia
     Dosage: 2 VIALS USED
     Route: 042
     Dates: start: 20220909, end: 20220910

REACTIONS (7)
  - Blood albumin decreased [Unknown]
  - Acute kidney injury [Unknown]
  - Oedema [Unknown]
  - Blood creatinine increased [Unknown]
  - Transaminases increased [Unknown]
  - Hypotension [Unknown]
  - Tachycardia [Unknown]
